FAERS Safety Report 6816462-6 (Version None)
Quarter: 2010Q2

REPORT INFORMATION
  Report Type: 
  Country: None (occurrence: None)
  Receive Date: 20100630
  Receipt Date: 20090727
  Transmission Date: 20101027
  Serious: No
  Sender: FDA-Public Use
  Company Number: US-WYE-H10350009

PATIENT
  Sex: Female

DRUGS (1)
  1. AXID AR [Suspect]
     Dosage: 1 TABLET, 1X PER 1 DAY, ORAL
     Route: 048
     Dates: start: 20090724, end: 20090724

REACTIONS (2)
  - DYSPEPSIA [None]
  - THROAT IRRITATION [None]
